FAERS Safety Report 8925805 (Version 4)
Quarter: 2013Q2

REPORT INFORMATION
  Report Type: Spontaneous
  Country: US (occurrence: US)
  Receive Date: 20121126
  Receipt Date: 20130620
  Transmission Date: 20140414
  Serious: Yes (Hospitalization, Disabling, Other)
  Sender: FDA-Public Use
  Company Number: US-009507513-1211USA008143

PATIENT
  Sex: Female

DRUGS (4)
  1. FOSAMAX [Suspect]
     Indication: OSTEOPOROSIS
     Dosage: 70 MG, QW
     Route: 048
     Dates: start: 199608, end: 200804
  2. FOSAMAX [Suspect]
     Dosage: 10 MG, UNK
     Route: 048
     Dates: start: 20000124, end: 20010131
  3. ALENDRONATE SODIUM [Suspect]
     Indication: OSTEOPOROSIS
     Dosage: 70 MG, QW
     Dates: start: 20080425, end: 201107
  4. SYNTHYROID [Concomitant]
     Indication: HYPOTHYROIDISM
     Dosage: UNK
     Route: 048
     Dates: start: 1987

REACTIONS (43)
  - Femur fracture [Recovered/Resolved]
  - Open reduction of fracture [Unknown]
  - Osteoporosis [Unknown]
  - Low turnover osteopathy [Unknown]
  - Dermal sinus [Unknown]
  - Skin operation [Unknown]
  - Atelectasis [Unknown]
  - Ileus [Recovered/Resolved]
  - Post procedural discharge [Recovered/Resolved]
  - Aortic valve replacement [Unknown]
  - Hypersensitivity [Unknown]
  - Depression [Unknown]
  - Sleep disorder [Unknown]
  - Impaired healing [Recovering/Resolving]
  - Upper limb fracture [Unknown]
  - Fall [Unknown]
  - Laceration [Unknown]
  - Blood cholesterol increased [Not Recovered/Not Resolved]
  - Blood pressure increased [Unknown]
  - Diverticulitis [Unknown]
  - Aortic stenosis [Unknown]
  - Hypoglycaemia [Unknown]
  - Transient ischaemic attack [Unknown]
  - Vitreous detachment [Unknown]
  - Anaemia [Unknown]
  - Cellulitis [Recovering/Resolving]
  - Arthritis [Unknown]
  - Diabetes mellitus [Unknown]
  - Fall [Unknown]
  - Left ventricular hypertrophy [Unknown]
  - Ventricular dyskinesia [Unknown]
  - Appendicectomy [Unknown]
  - Oophorectomy [Unknown]
  - Hyperlipidaemia [Unknown]
  - Paraesthesia [Unknown]
  - Varicose vein [Unknown]
  - Anxiety [Unknown]
  - Dermatitis allergic [Unknown]
  - Drug hypersensitivity [Unknown]
  - Pain in extremity [Unknown]
  - Nausea [Unknown]
  - Vomiting [Unknown]
  - Diarrhoea [Unknown]
